FAERS Safety Report 23172193 (Version 1)
Quarter: 2023Q4

REPORT INFORMATION
  Report Type: Spontaneous
  Country: IN (occurrence: IN)
  Receive Date: 20231110
  Receipt Date: 20231110
  Transmission Date: 20240110
  Serious: Yes (Other)
  Sender: FDA-Public Use
  Company Number: IN-SUN PHARMACEUTICAL INDUSTRIES LTD-2023R1-417204

PATIENT
  Age: 32 Year
  Sex: Female

DRUGS (2)
  1. ERLOTINIB [Suspect]
     Active Substance: ERLOTINIB
     Indication: Papillary renal cell carcinoma
     Dosage: FOUR CYCLES
     Route: 065
     Dates: start: 202305, end: 202308
  2. BEVACIZUMAB [Suspect]
     Active Substance: BEVACIZUMAB
     Indication: Papillary renal cell carcinoma
     Dosage: FOUR CYCLES
     Route: 065
     Dates: start: 202305, end: 202308

REACTIONS (1)
  - Disease progression [Unknown]
